FAERS Safety Report 16264773 (Version 1)
Quarter: 2019Q2

REPORT INFORMATION
  Report Type: Spontaneous
  Country: DE (occurrence: DE)
  Receive Date: 20190502
  Receipt Date: 20190502
  Transmission Date: 20190711
  Serious: Yes (Other)
  Sender: FDA-Public Use
  Company Number: DE-TEVA-2019-DE-1042515

PATIENT
  Sex: Male

DRUGS (1)
  1. LEVETIRACETAM. [Suspect]
     Active Substance: LEVETIRACETAM
     Dosage: INTAKE FOR ABOUT 2 YEARS - (INTAKE FOR ABOUT 2 YEARS)
     Route: 065

REACTIONS (2)
  - Vitamin D decreased [Unknown]
  - Thoracic vertebral fracture [Unknown]
